FAERS Safety Report 4664594-3 (Version None)
Quarter: 2005Q2

REPORT INFORMATION
  Report Type: 
  Country: None (occurrence: None)
  Receive Date: 20050518
  Receipt Date: 20050513
  Transmission Date: 20051028
  Serious: Yes (Life-Threatening)
  Sender: FDA-Public Use
  Company Number: DE-GLAXOSMITHKLINE-B0380911A

PATIENT
  Age: 57 Year
  Sex: Male

DRUGS (5)
  1. MELPHALAN [Suspect]
     Indication: STEM CELL TRANSPLANT
     Dates: start: 20031104, end: 20031105
  2. THALIDOMIDE [Concomitant]
     Indication: MULTIPLE MYELOMA
     Dosage: 100MG PER DAY
     Route: 048
     Dates: start: 20030911, end: 20030914
  3. CYCLOPHOSPHAMIDE [Concomitant]
     Indication: MULTIPLE MYELOMA
     Dosage: 400MGM2 PER DAY
     Dates: start: 20030911, end: 20030914
  4. ETOPOSIDE [Concomitant]
     Indication: MULTIPLE MYELOMA
     Dosage: 40MGM2 PER DAY
     Dates: start: 20030911, end: 20030914
  5. DEXAMETHASONE [Concomitant]
     Indication: MULTIPLE MYELOMA
     Dosage: 40MGM2 PER DAY
     Dates: start: 20030911, end: 20030914

REACTIONS (4)
  - ESCHERICHIA INFECTION [None]
  - ESCHERICHIA SEPSIS [None]
  - LEUKOPENIA [None]
  - SEPSIS [None]
